FAERS Safety Report 23102111 (Version 1)
Quarter: 2023Q4

REPORT INFORMATION
  Report Type: Spontaneous
  Country: US (occurrence: US)
  Receive Date: 20231025
  Receipt Date: 20231025
  Transmission Date: 20240109
  Serious: No
  Sender: FDA-Public Use
  Company Number: US-JNJFOC-20231006969

PATIENT
  Age: 36 Year
  Sex: Female

DRUGS (2)
  1. WOMENS ROGAINE UNSCENTED [Suspect]
     Active Substance: MINOXIDIL
     Indication: Alopecia
     Dosage: 1/2 CAPFUL USUALLY ONCE A DAY
     Route: 061
  2. ROGAINE [Concomitant]
     Active Substance: MINOXIDIL
     Indication: Alopecia
     Route: 061

REACTIONS (1)
  - Therapeutic product effect delayed [Unknown]
